FAERS Safety Report 20783313 (Version 3)
Quarter: 2023Q1

REPORT INFORMATION
  Report Type: Spontaneous
  Country: US (occurrence: US)
  Receive Date: 20220504
  Receipt Date: 20230315
  Transmission Date: 20230417
  Serious: No
  Sender: FDA-Public Use
  Company Number: US-PFIZER INC-202200079719

PATIENT
  Age: 64 Year
  Sex: Female

DRUGS (1)
  1. XELJANZ [Suspect]
     Active Substance: TOFACITINIB CITRATE
     Dosage: 5 MG
     Dates: start: 20210922

REACTIONS (4)
  - Paraesthesia oral [Recovered/Resolved]
  - Peripheral swelling [Unknown]
  - Chest discomfort [Unknown]
  - Hypoaesthesia [Unknown]
